FAERS Safety Report 7335243-0 (Version None)
Quarter: 2011Q1

REPORT INFORMATION
  Report Type: 
  Country: None (occurrence: None)
  Receive Date: 20110307
  Receipt Date: 20110303
  Transmission Date: 20110831
  Serious: No
  Sender: FDA-Public Use
  Company Number: US-PFIZER INC-2011047348

PATIENT
  Sex: Female
  Weight: 74.83 kg

DRUGS (2)
  1. ZOLOFT [Suspect]
     Indication: DEPRESSION
     Dosage: 200 MG, 1X/DAY
     Route: 048
     Dates: start: 20080101
  2. BUSPAR [Concomitant]
     Indication: DEPRESSION
     Dosage: UNK

REACTIONS (1)
  - BLADDER DYSFUNCTION [None]
